FAERS Safety Report 19683223 (Version 1)
Quarter: 2021Q3

REPORT INFORMATION
  Report Type: Spontaneous
  Country: US (occurrence: US)
  Receive Date: 20210810
  Receipt Date: 20210810
  Transmission Date: 20211014
  Serious: Yes (Other)
  Sender: FDA-Public Use
  Company Number: US-ELI_LILLY_AND_COMPANY-US202108001025

PATIENT
  Sex: Male

DRUGS (3)
  1. TRULICITY [Suspect]
     Active Substance: DULAGLUTIDE
     Indication: DIABETES MELLITUS
     Dosage: 0.75 MG, UNKNOWN
     Route: 058
  2. TRULICITY [Suspect]
     Active Substance: DULAGLUTIDE
     Dosage: 1.5 MG, UNKNOWN
     Route: 058
  3. TRULICITY [Suspect]
     Active Substance: DULAGLUTIDE
     Dosage: 1.5 MG, UNKNOWN
     Route: 058

REACTIONS (10)
  - Circulatory collapse [Unknown]
  - Ventricular extrasystoles [Unknown]
  - Dyspnoea [Unknown]
  - Tachycardia [Unknown]
  - Atrial fibrillation [Unknown]
  - Loss of consciousness [Unknown]
  - Blood pressure decreased [Recovering/Resolving]
  - Muscular weakness [Unknown]
  - Supraventricular extrasystoles [Unknown]
  - Muscle atrophy [Unknown]
